FAERS Safety Report 15280341 (Version 1)
Quarter: 2018Q3

REPORT INFORMATION
  Report Type: Spontaneous
  Country: US (occurrence: US)
  Receive Date: 20180730
  Receipt Date: 20180730
  Transmission Date: 20181010
  Serious: Yes (Disabling)
  Sender: FDA-Public Use
  Company Number: None

PATIENT
  Age: 61 Year
  Sex: Female
  Weight: 57.6 kg

DRUGS (2)
  1. IC AMOXICILLIN [Concomitant]
  2. FLUTICASONE PROPIONATE NASAL SPRAY, USP, 60 METERED SPRAYS (0.34 FL OZ [Suspect]
     Active Substance: FLUTICASONE PROPIONATE
     Indication: COUGH
     Dosage: ?          QUANTITY:2 SPRAY(S);OTHER ROUTE:NOSE?

REACTIONS (4)
  - Nasal dryness [None]
  - Ageusia [None]
  - Hypogeusia [None]
  - Dry throat [None]

NARRATIVE: CASE EVENT DATE: 20180521
